FAERS Safety Report 7286214-4 (Version None)
Quarter: 2011Q1

REPORT INFORMATION
  Report Type: 
  Country: None (occurrence: None)
  Receive Date: 20110210
  Receipt Date: 20110201
  Transmission Date: 20110831
  Serious: Yes (Other)
  Sender: FDA-Public Use
  Company Number: PHHY2011FR04371

PATIENT
  Sex: Female

DRUGS (8)
  1. ACLASTA [Suspect]
     Indication: OSTEOPOROSIS
     Dosage: UNK
  2. LAMALINE [Concomitant]
     Indication: PAIN
     Dosage: 1 DF, QD
     Dates: start: 20091023
  3. TRAMADOL HCL [Concomitant]
     Indication: PAIN
     Dosage: 1 DF, QD
     Route: 048
     Dates: start: 20091013
  4. CYMBALTA [Concomitant]
     Indication: DEPRESSION
     Dosage: 60 MG, UNK
     Route: 048
     Dates: start: 20110119
  5. ACLASTA [Suspect]
     Dosage: UNK
     Route: 042
     Dates: start: 20100317
  6. ZOPICLONE [Concomitant]
     Dosage: UNK
  7. GLUCOSAMINE [Concomitant]
     Indication: OSTEOARTHRITIS
     Dosage: 1178 MG, QD
     Dates: start: 20101001
  8. CALTRATE [Concomitant]

REACTIONS (1)
  - LOOSE TOOTH [None]
